FAERS Safety Report 9763866 (Version 1)
Quarter: 2013Q4

REPORT INFORMATION
  Report Type: Spontaneous
  Country: US (occurrence: US)
  Receive Date: 20131216
  Receipt Date: 20131216
  Transmission Date: 20140711
  Serious: No
  Sender: FDA-Public Use
  Company Number: US-BIOGENIDEC-2013BI115719

PATIENT
  Age: 33 Year
  Sex: Female

DRUGS (12)
  1. TECFIDERA [Suspect]
     Indication: MULTIPLE SCLEROSIS
     Route: 048
     Dates: start: 20131112
  2. TIZANIDINE [Concomitant]
  3. METRONIDAZOLE [Concomitant]
  4. DIAZEPAM [Concomitant]
  5. NADOLOL [Concomitant]
  6. AFLURIA [Concomitant]
  7. VIORELE [Concomitant]
  8. B-NEXA [Concomitant]
  9. PREDNISONE [Concomitant]
  10. BUTALBITAL-ACETAMINOPHEN [Concomitant]
  11. SOLODYN [Concomitant]
  12. ASPIRIN [Concomitant]

REACTIONS (5)
  - Malaise [Unknown]
  - Abdominal discomfort [Unknown]
  - Flushing [Unknown]
  - Vomiting [Unknown]
  - Nausea [Unknown]
